FAERS Safety Report 19316897 (Version 1)
Quarter: 2021Q2

REPORT INFORMATION
  Report Type: Spontaneous
  Country: CA (occurrence: CA)
  Receive Date: 20210527
  Receipt Date: 20210527
  Transmission Date: 20210717
  Serious: Yes (Hospitalization)
  Sender: FDA-Public Use
  Company Number: CA-JNJFOC-20210540939

PATIENT
  Age: 59 Year
  Sex: Female

DRUGS (1)
  1. INFLIXIMAB, RECOMBINANT [Suspect]
     Active Substance: INFLIXIMAB
     Indication: COLITIS ULCERATIVE
     Route: 042

REACTIONS (8)
  - Nervousness [Unknown]
  - Loss of therapeutic response [Unknown]
  - Tremor [Unknown]
  - Chest discomfort [Unknown]
  - Clostridium difficile infection [Unknown]
  - Dysgraphia [Unknown]
  - Condition aggravated [Unknown]
  - Off label use [Unknown]
